FAERS Safety Report 6294867-2 (Version None)
Quarter: 2009Q3

REPORT INFORMATION
  Report Type: 
  Country: None (occurrence: None)
  Receive Date: 20090803
  Receipt Date: 20090727
  Transmission Date: 20100115
  Serious: Yes (Other)
  Sender: FDA-Public Use
  Company Number: CA-ABBOTT-09P-028-0585405-00

PATIENT
  Sex: Male
  Weight: 69.916 kg

DRUGS (2)
  1. HUMIRA [Suspect]
     Indication: ANKYLOSING SPONDYLITIS
     Route: 058
     Dates: start: 20090313
  2. HUMIRA [Suspect]

REACTIONS (4)
  - BRONCHITIS [None]
  - IMPAIRED HEALING [None]
  - INTERNAL FIXATION OF FRACTURE [None]
  - NASOPHARYNGITIS [None]
